FAERS Safety Report 22804512 (Version 4)
Quarter: 2023Q4

REPORT INFORMATION
  Report Type: Spontaneous
  Country: US (occurrence: US)
  Receive Date: 20230809
  Receipt Date: 20231108
  Transmission Date: 20240110
  Serious: No
  Sender: FDA-Public Use
  Company Number: US-SA-2023SA152330

PATIENT
  Sex: Female

DRUGS (2)
  1. SELSUN BLUE MOISTURIZING [Suspect]
     Active Substance: SELENIUM SULFIDE
     Indication: Pruritus
     Dosage: DOSE DESCRIPTION : UNK, STRENGTH OF SUSPECT:3,25 G/325 ML
     Route: 065
  2. SELSUN BLUE MOISTURIZING [Suspect]
     Active Substance: SELENIUM SULFIDE
     Dosage: DOSE DESCRIPTION : UNK, STRENGTH OF SUSPECT:3,25 G/325 ML
     Route: 065

REACTIONS (2)
  - Pruritus [Unknown]
  - Dry skin [Unknown]
